FAERS Safety Report 5457082-8 (Version None)
Quarter: 2007Q3

REPORT INFORMATION
  Report Type: 
  Country: None (occurrence: None)
  Receive Date: 20070918
  Receipt Date: 20070702
  Transmission Date: 20080115
  Serious: Yes (Other)
  Sender: FDA-Public Use
  Company Number: US-ASTRAZENECA-2006UW27842

PATIENT
  Age: 623 Month
  Sex: Female
  Weight: 104.5 kg

DRUGS (6)
  1. SEROQUEL [Suspect]
     Route: 048
     Dates: end: 20050201
  2. CLOZARIL [Concomitant]
  3. GEODON [Concomitant]
  4. HALDOL [Concomitant]
  5. RISPERDAL [Concomitant]
  6. STELAZINE [Concomitant]

REACTIONS (2)
  - DIABETES MELLITUS [None]
  - DIABETIC COMA [None]
